FAERS Safety Report 13338801 (Version 1)
Quarter: 2017Q1

REPORT INFORMATION
  Report Type: Report from Study
  Country: CN (occurrence: CN)
  Receive Date: 20170315
  Receipt Date: 20170315
  Transmission Date: 20170428
  Serious: Yes (Other)
  Sender: FDA-Public Use
  Company Number: CN-MYLANLABS-2017M1015661

PATIENT

DRUGS (1)
  1. MYCOPHENOLATE MOFETIL. [Suspect]
     Active Substance: MYCOPHENOLATE MOFETIL
     Indication: ENDOCRINE OPHTHALMOPATHY
     Dosage: TOTAL DOSE: 1000MG/DAY
     Route: 048

REACTIONS (1)
  - Hypokalaemia [Recovered/Resolved]
